FAERS Safety Report 16680154 (Version 1)
Quarter: 2019Q3

REPORT INFORMATION
  Report Type: Spontaneous
  Country: GB (occurrence: GB)
  Receive Date: 20190807
  Receipt Date: 20190807
  Transmission Date: 20191004
  Serious: Yes (Hospitalization)
  Sender: FDA-Public Use
  Company Number: GB-PFIZER INC-2019331878

PATIENT
  Age: 58 Year
  Sex: Male

DRUGS (1)
  1. DEFEROXAMINE MESILATE [Suspect]
     Active Substance: DEFEROXAMINE MESYLATE
     Dosage: 1.5 G, CYCLIC (5 DAYS A WEEK)
     Route: 058

REACTIONS (1)
  - Organ failure [Unknown]
